FAERS Safety Report 24991922 (Version 1)
Quarter: 2025Q1

REPORT INFORMATION
  Report Type: Spontaneous
  Country: US (occurrence: US)
  Receive Date: 20250220
  Receipt Date: 20250220
  Transmission Date: 20250408
  Serious: No
  Sender: LEXICON PHARMACEUTICALS
  Company Number: US-LEX-000652

PATIENT
  Age: 73 Year
  Sex: Female

DRUGS (4)
  1. INPEFA [Suspect]
     Active Substance: SOTAGLIFLOZIN
     Indication: Arteriosclerosis
     Route: 048
     Dates: start: 20250103
  2. LOSARTAN [Concomitant]
     Active Substance: LOSARTAN
  3. ATORVASTATIN [Concomitant]
     Active Substance: ATORVASTATIN
  4. CARVEDILOL [Concomitant]
     Active Substance: CARVEDILOL

REACTIONS (2)
  - Diarrhoea [Unknown]
  - Off label use [Unknown]

NARRATIVE: CASE EVENT DATE: 20250103
